FAERS Safety Report 19719946 (Version 1)
Quarter: 2021Q3

REPORT INFORMATION
  Report Type: Spontaneous
  Country: US (occurrence: US)
  Receive Date: 20210819
  Receipt Date: 20210819
  Transmission Date: 20211014
  Serious: Yes (Hospitalization, Other)
  Sender: FDA-Public Use
  Company Number: US-009507513-2108USA003216

PATIENT
  Age: 50 Year
  Sex: Male

DRUGS (3)
  1. TICAGRELOR. [Concomitant]
     Active Substance: TICAGRELOR
     Dosage: UNK
  2. INTEGRILIN [Suspect]
     Active Substance: EPTIFIBATIDE
     Dosage: DOUBLE BOLUS,CONTINUED FOR 12 HOURS THEREAFTER
  3. ASPIRINE [Suspect]
     Active Substance: ASPIRIN

REACTIONS (3)
  - Pulmonary alveolar haemorrhage [Recovered/Resolved]
  - Labelled drug-drug interaction issue [Unknown]
  - Thrombocytopenia [Recovered/Resolved]
